FAERS Safety Report 18127003 (Version 5)
Quarter: 2021Q3

REPORT INFORMATION
  Report Type: Spontaneous
  Country: US (occurrence: US)
  Receive Date: 20200810
  Receipt Date: 20210919
  Transmission Date: 20211014
  Serious: No
  Sender: FDA-Public Use
  Company Number: US-SA-2020SA205542

PATIENT
  Age: 50 Year
  Sex: Male

DRUGS (1)
  1. DUPIXENT [Suspect]
     Active Substance: DUPILUMAB
     Indication: DERMATITIS ATOPIC
     Dosage: 300 MG, QOW
     Route: 058
     Dates: start: 20200609

REACTIONS (8)
  - Periorbital inflammation [Unknown]
  - Drug ineffective [Unknown]
  - Eye inflammation [Unknown]
  - Erythema [Unknown]
  - Stomatitis [Unknown]
  - Eye irritation [Unknown]
  - Oral herpes [Unknown]
  - Dry eye [Unknown]

NARRATIVE: CASE EVENT DATE: 2020
